FAERS Safety Report 9472224 (Version 1)
Quarter: 2013Q3

REPORT INFORMATION
  Report Type: Report from Study
  Country: US (occurrence: US)
  Receive Date: 20130823
  Receipt Date: 20130823
  Transmission Date: 20140515
  Serious: No
  Sender: FDA-Public Use
  Company Number: US-009507513-1308USA009170

PATIENT
  Age: 21 Year
  Sex: Female
  Weight: 64.4 kg

DRUGS (1)
  1. IMPLANON [Suspect]
     Dosage: UNK
     Route: 059
     Dates: start: 2013, end: 20130816

REACTIONS (3)
  - Implant site pain [Unknown]
  - Haemorrhage [Unknown]
  - Medical device removal [Recovered/Resolved]
